FAERS Safety Report 24701426 (Version 1)
Quarter: 2024Q4

REPORT INFORMATION
  Report Type: Spontaneous
  Country: US (occurrence: US)
  Receive Date: 20241205
  Receipt Date: 20241205
  Transmission Date: 20250115
  Serious: No
  Sender: BAUSCH AND LOMB
  Company Number: US-BAUSCH-BL-2024-017475

PATIENT
  Age: 77 Year
  Sex: Male

DRUGS (3)
  1. IPRATROPIUM [Suspect]
     Active Substance: IPRATROPIUM
     Indication: Product used for unknown indication
     Route: 065
  2. DUPIXENT [Suspect]
     Active Substance: DUPILUMAB
     Indication: Neurodermatitis
     Dosage: 300 MG/2ML
     Route: 058
     Dates: start: 20210323, end: 20210323
  3. DUPIXENT [Suspect]
     Active Substance: DUPILUMAB
     Indication: Pemphigoid
     Route: 058
     Dates: start: 20210507

REACTIONS (14)
  - Dysphonia [Unknown]
  - Oedema peripheral [Recovering/Resolving]
  - Urinary incontinence [Recovering/Resolving]
  - Injection site urticaria [Recovering/Resolving]
  - Injection site mass [Not Recovered/Not Resolved]
  - Hypoaesthesia [Unknown]
  - Blister [Unknown]
  - Injection site rash [Recovered/Resolved]
  - Injection site pruritus [Recovered/Resolved]
  - Injection site erythema [Recovering/Resolving]
  - Lack of injection site rotation [Unknown]
  - Wrong technique in device usage process [Unknown]
  - Incorrect dose administered by device [Unknown]
  - Product prescribing issue [Unknown]

NARRATIVE: CASE EVENT DATE: 20210101
